FAERS Safety Report 6420230-7 (Version None)
Quarter: 2009Q4

REPORT INFORMATION
  Report Type: 
  Country: None (occurrence: None)
  Receive Date: 20091029
  Receipt Date: 20091020
  Transmission Date: 20100525
  Serious: Yes (Other)
  Sender: FDA-Public Use
  Company Number: PHHY2009JP26871

PATIENT
  Age: 33 Year
  Sex: Male

DRUGS (3)
  1. VOLTAREN [Suspect]
     Indication: POSTOPERATIVE ANALGESIA
     Dosage: 25 MG, TID
     Route: 048
     Dates: start: 20090630
  2. MEIACT [Concomitant]
     Indication: ANALGESIC THERAPY
     Dosage: UNK
     Route: 048
     Dates: start: 20090630
  3. MUCOSTA [Concomitant]
     Indication: ANALGESIC THERAPY
     Dosage: UNK
     Route: 048
     Dates: start: 20090630

REACTIONS (3)
  - CRANIAL NERVE PARALYSIS [None]
  - FACIAL PALSY [None]
  - SENSORY LOSS [None]
